FAERS Safety Report 4737641-8 (Version None)
Quarter: 2005Q3

REPORT INFORMATION
  Report Type: 
  Country: None (occurrence: None)
  Receive Date: 20050809
  Receipt Date: 20050603
  Transmission Date: 20060218
  Serious: No
  Sender: FDA-Public Use
  Company Number: US-GLAXOSMITHKLINE-A0561094A

PATIENT
  Age: 66 Year
  Sex: Female

DRUGS (2)
  1. COMMIT [Suspect]
  2. NICODERM CQ [Suspect]

REACTIONS (4)
  - ACCIDENTAL EXPOSURE [None]
  - COUGH [None]
  - DYSPEPSIA [None]
  - NICOTINE DEPENDENCE [None]
